FAERS Safety Report 18657901 (Version 9)
Quarter: 2024Q4

REPORT INFORMATION
  Report Type: Report from Study
  Country: JP (occurrence: JP)
  Receive Date: 20201224
  Receipt Date: 20241007
  Transmission Date: 20250115
  Serious: Yes (Death, Hospitalization, Other)
  Sender: ABBVIE
  Company Number: JP-TAKEDA-2020TJP002347

PATIENT
  Age: 78 Year
  Sex: Male
  Weight: 54 kg

DRUGS (6)
  1. LEUPLIN [Suspect]
     Active Substance: LEUPROLIDE ACETATE
     Indication: Bulbospinal muscular atrophy congenital
     Dosage: FORM STRENGTH: 11.25 MILLIGRAM
     Route: 058
     Dates: start: 20171004, end: 20231129
  2. MIYA-BM [Concomitant]
     Active Substance: CLOSTRIDIUM BUTYRICUM SPORES STRAIN M-55
     Indication: Product used for unknown indication
     Route: 065
     Dates: start: 20230601, end: 20230605
  3. LOXOPROFEN SODIUM [Concomitant]
     Active Substance: LOXOPROFEN SODIUM
     Indication: Product used for unknown indication
     Dosage: UNK
     Route: 065
     Dates: start: 20220112
  4. LOXOPROFEN SODIUM [Concomitant]
     Active Substance: LOXOPROFEN SODIUM
     Indication: Product used for unknown indication
     Route: 065
     Dates: start: 20210413
  5. NEXIUM [Concomitant]
     Active Substance: ESOMEPRAZOLE MAGNESIUM
     Indication: Product used for unknown indication
     Route: 065
     Dates: start: 20230601, end: 20230605
  6. BUTYLSCOPOLAMINE BROMIDE [Concomitant]
     Active Substance: BUTYLSCOPOLAMINE BROMIDE
     Indication: Product used for unknown indication
     Route: 065
     Dates: start: 20230601, end: 20230605

REACTIONS (11)
  - Pneumonia [Fatal]
  - Sputum increased [Recovering/Resolving]
  - Bronchitis [Recovered/Resolved]
  - Contusion [Recovered/Resolved]
  - Back pain [Recovering/Resolving]
  - Myalgia [Recovering/Resolving]
  - Bone density decreased [Unknown]
  - Glucose tolerance impaired [Not Recovered/Not Resolved]
  - Cholecystitis [Not Recovered/Not Resolved]
  - Gastroenteritis [Recovered/Resolved]
  - Tachycardia [Recovered/Resolved]

NARRATIVE: CASE EVENT DATE: 20190306
